FAERS Safety Report 23651646 (Version 1)
Quarter: 2024Q1

REPORT INFORMATION
  Report Type: Spontaneous
  Country: DE (occurrence: DE)
  Receive Date: 20240320
  Receipt Date: 20240320
  Transmission Date: 20240410
  Serious: Yes (Hospitalization)
  Sender: FDA-Public Use
  Company Number: DE-ADRED-05067-02

PATIENT
  Age: 73 Year
  Sex: Male

DRUGS (9)
  1. AMOXICILLIN\CLAVULANIC ACID [Suspect]
     Active Substance: AMOXICILLIN\CLAVULANIC ACID
     Indication: Product used for unknown indication
     Dosage: TO 10022020
  2. METRONIDAZOLE [Suspect]
     Active Substance: METRONIDAZOLE
     Indication: Product used for unknown indication
     Dosage: TO 17022020
  3. VANCOMYCIN [Suspect]
     Active Substance: VANCOMYCIN
     Indication: Product used for unknown indication
     Dosage: 250 MG, UP TO 22022020
  4. FINASTERIDE [Concomitant]
     Active Substance: FINASTERIDE
     Indication: Product used for unknown indication
     Dosage: 5 MG, 1-0-0-0
  5. kalinor [Concomitant]
     Indication: Product used for unknown indication
     Dosage: 1-1-1-0, SUSTAINED-RELEASE CAPSULES
  6. CANDESARTAN [Concomitant]
     Active Substance: CANDESARTAN
     Indication: Product used for unknown indication
     Dosage: 8 MG, 1-0-0-0
  7. OMEPRAZOLE [Concomitant]
     Active Substance: OMEPRAZOLE
     Indication: Product used for unknown indication
     Dosage: 20 MG, 1-0-0-0
  8. TAMSULOSIN [Concomitant]
     Active Substance: TAMSULOSIN
     Indication: Product used for unknown indication
     Dosage: 0.4 MG, 0-0-1-0
  9. KALINOR [Concomitant]
     Indication: Product used for unknown indication
     Dosage: 1-1-1-0, PROLONGED-RELEASE CAPSULES

REACTIONS (5)
  - Faeces discoloured [Unknown]
  - Abdominal pain [Unknown]
  - Diarrhoea [Unknown]
  - Diarrhoea [Unknown]
  - Diarrhoea [Unknown]
